FAERS Safety Report 7081341-9 (Version None)
Quarter: 2010Q4

REPORT INFORMATION
  Report Type: 
  Country: None (occurrence: None)
  Receive Date: 20101103
  Receipt Date: 20101021
  Transmission Date: 20110411
  Serious: Yes (Hospitalization, Other)
  Sender: FDA-Public Use
  Company Number: PHHY2010CY35150

PATIENT
  Age: 67 Year
  Sex: Male

DRUGS (5)
  1. ZOLEDRONATE T29581++BM [Suspect]
     Dosage: 4 MG, QMO
     Dates: start: 20090722, end: 20100429
  2. FENTANYL [Concomitant]
     Dosage: 150 MG/H
     Dates: start: 20100303
  3. MORPHINE [Concomitant]
     Dosage: 20-40 MG PRN
     Route: 048
  4. AMITRIPTYLINE HCL [Concomitant]
     Dosage: 25 MG, QD
     Dates: start: 20100303
  5. GABAPENTIN [Concomitant]
     Dosage: 400 MG, TID
     Dates: start: 20100303

REACTIONS (2)
  - GENERAL PHYSICAL HEALTH DETERIORATION [None]
  - PAIN [None]
